FAERS Safety Report 9557451 (Version 1)
Quarter: 2013Q3

REPORT INFORMATION
  Report Type: Spontaneous
  Country: US (occurrence: US)
  Receive Date: 20130926
  Receipt Date: 20130926
  Transmission Date: 20140515
  Serious: No
  Sender: FDA-Public Use
  Company Number: US-TEVA-434468USA

PATIENT
  Sex: Male

DRUGS (1)
  1. QVAR [Suspect]

REACTIONS (2)
  - Drug ineffective [Unknown]
  - Dysgeusia [Unknown]
